FAERS Safety Report 11543767 (Version 1)
Quarter: 2015Q3

REPORT INFORMATION
  Report Type: Report from Study
  Country: US (occurrence: US)
  Receive Date: 20150924
  Receipt Date: 20150924
  Transmission Date: 20151125
  Serious: No
  Sender: FDA-Public Use
  Company Number: PHEH2014US006913

PATIENT
  Sex: Female

DRUGS (2)
  1. TEKTURNA HCT [Suspect]
     Active Substance: ALISKIREN HEMIFUMARATE\HYDROCHLOROTHIAZIDE
     Dosage: 1 DF (150 MG ALIS, 25 MG HCTZ)
     Route: 048
  2. TEKTURNA HCT [Suspect]
     Active Substance: ALISKIREN HEMIFUMARATE\HYDROCHLOROTHIAZIDE
     Indication: PRODUCT USED FOR UNKNOWN INDICATION
     Dosage: 1 DF (150 MG ALIS, 12.5 MG HCTZ)
     Route: 048

REACTIONS (3)
  - Hearing impaired [Unknown]
  - Hypertension [Unknown]
  - Influenza [Unknown]
